FAERS Safety Report 9611856 (Version 1)
Quarter: 2013Q4

REPORT INFORMATION
  Report Type: Spontaneous
  Country: US (occurrence: US)
  Receive Date: 20131010
  Receipt Date: 20131010
  Transmission Date: 20140711
  Serious: Yes (Hospitalization, Other)
  Sender: FDA-Public Use
  Company Number: US-JNJFOC-20131003320

PATIENT
  Sex: Male
  Weight: 136.08 kg

DRUGS (1)
  1. XARELTO [Suspect]
     Indication: PULMONARY EMBOLISM
     Route: 048

REACTIONS (3)
  - Embolism [Unknown]
  - Drug ineffective [Unknown]
  - Wrong technique in drug usage process [Unknown]
